FAERS Safety Report 10392175 (Version 1)
Quarter: 2014Q3

REPORT INFORMATION
  Report Type: Spontaneous
  Country: US (occurrence: US)
  Receive Date: 20140819
  Receipt Date: 20140819
  Transmission Date: 20150326
  Serious: No
  Sender: FDA-Public Use
  Company Number: US-BIOGENIDEC-2014BI080238

PATIENT
  Age: 65 Year
  Sex: Female

DRUGS (4)
  1. ZOLPIDEM TARTRATE. [Concomitant]
     Active Substance: ZOLPIDEM TARTRATE
  2. TECFIDERA [Suspect]
     Active Substance: DIMETHYL FUMARATE
     Indication: MULTIPLE SCLEROSIS
     Route: 048
     Dates: start: 20140530
  3. AMBIEN [Concomitant]
     Active Substance: ZOLPIDEM TARTRATE
  4. SOMA [Concomitant]
     Active Substance: CARISOPRODOL

REACTIONS (1)
  - Gastrooesophageal reflux disease [Unknown]
